FAERS Safety Report 9932756 (Version 2)
Quarter: 2014Q1

REPORT INFORMATION
  Report Type: Spontaneous
  Country: US (occurrence: US)
  Receive Date: 20140228
  Receipt Date: 20140228
  Transmission Date: 20141002
  Serious: No
  Sender: FDA-Public Use
  Company Number: US-ABBVIE-13P-163-1064658-00

PATIENT
  Age: 76 Year
  Sex: Male
  Weight: 72.64 kg

DRUGS (8)
  1. ANDROGEL [Suspect]
     Indication: BLOOD TESTOSTERONE DECREASED
     Dosage: 1 PACKET
     Route: 061
     Dates: start: 201211, end: 201303
  2. ANDROGEL [Suspect]
     Dosage: 1 PACKET
     Route: 061
     Dates: start: 201308
  3. UNKNOWN MEDICATION [Concomitant]
     Indication: HYPERTENSION
  4. VALIUM [Concomitant]
     Indication: MENTAL DISORDER
  5. FLOMAX [Concomitant]
     Indication: PRODUCT USED FOR UNKNOWN INDICATION
  6. AMLODIPINE [Concomitant]
     Indication: PRODUCT USED FOR UNKNOWN INDICATION
  7. CRESTOR [Concomitant]
     Indication: PRODUCT USED FOR UNKNOWN INDICATION
  8. TOFRANIL [Concomitant]
     Indication: PRODUCT USED FOR UNKNOWN INDICATION

REACTIONS (3)
  - Paraesthesia [Recovered/Resolved]
  - Loss of libido [Not Recovered/Not Resolved]
  - Paraesthesia [Not Recovered/Not Resolved]
